FAERS Safety Report 10165657 (Version 1)
Quarter: 2014Q2

REPORT INFORMATION
  Report Type: Spontaneous
  Country: US (occurrence: US)
  Receive Date: 20140510
  Receipt Date: 20140510
  Transmission Date: 20141212
  Serious: No
  Sender: FDA-Public Use
  Company Number: US-BRISTOL-MYERS SQUIBB COMPANY-19881515

PATIENT
  Age: 87 Year
  Sex: Female
  Weight: 72.56 kg

DRUGS (5)
  1. BYDUREON [Suspect]
     Indication: TYPE 2 DIABETES MELLITUS
  2. METFORMIN [Concomitant]
     Dosage: 1DF:850 UNIT NOS
  3. ACTOS [Concomitant]
     Dosage: 1DF:30 UNIT NOS
  4. PRECOSE [Concomitant]
  5. LISINOPRIL [Concomitant]

REACTIONS (1)
  - Neuropathy peripheral [Unknown]
